FAERS Safety Report 16958508 (Version 1)
Quarter: 2019Q4

REPORT INFORMATION
  Report Type: Spontaneous
  Country: US (occurrence: US)
  Receive Date: 20191024
  Receipt Date: 20191024
  Transmission Date: 20200122
  Serious: Yes (Hospitalization, Other)
  Sender: FDA-Public Use
  Company Number: US-GALDERMA-US19062230

PATIENT
  Age: 68 Year
  Sex: Male

DRUGS (1)
  1. DOXYCYCLINE. [Suspect]
     Active Substance: DOXYCYCLINE
     Indication: HELICOBACTER INFECTION
     Route: 065

REACTIONS (8)
  - Gastric ulcer [Unknown]
  - Gastric mucosal lesion [Unknown]
  - Melaena [Unknown]
  - Mucosal inflammation [Unknown]
  - Thrombosis [Unknown]
  - Product use in unapproved indication [Recovered/Resolved]
  - Gastric mucosa erythema [Unknown]
  - Chronic gastritis [Unknown]
